FAERS Safety Report 16219300 (Version 1)
Quarter: 2019Q2

REPORT INFORMATION
  Report Type: Spontaneous
  Country: FR (occurrence: FR)
  Receive Date: 20190419
  Receipt Date: 20190419
  Transmission Date: 20190711
  Serious: Yes (Other)
  Sender: FDA-Public Use
  Company Number: FR-MYLANLABS-2019M1037422

PATIENT
  Age: 26 Year
  Sex: Male

DRUGS (2)
  1. LEPONEX 100 MG [Suspect]
     Active Substance: CLOZAPINE
     Indication: SCHIZOPHRENIA
     Dosage: 625 MILLIGRAM, QD
     Route: 048
     Dates: start: 201810, end: 20181029
  2. LEPONEX 100 MG [Suspect]
     Active Substance: CLOZAPINE
     Dosage: UNK
     Route: 048
     Dates: start: 2018

REACTIONS (1)
  - Hyperleukocytosis [Recovering/Resolving]

NARRATIVE: CASE EVENT DATE: 20181029
